FAERS Safety Report 7906547-5 (Version None)
Quarter: 2011Q4

REPORT INFORMATION
  Report Type: 
  Country: None (occurrence: None)
  Receive Date: 20111110
  Receipt Date: 20111104
  Transmission Date: 20120403
  Serious: Yes (Other)
  Sender: FDA-Public Use
  Company Number: HK-PFIZER INC-2011269774

PATIENT
  Age: 67 Year
  Sex: Female

DRUGS (3)
  1. XALATAN [Suspect]
     Dosage: 1 GTT, 1X/DAY EVERY NIGHT AT 8
  2. LEVOFLOXACIN [Suspect]
     Indication: ANTIINFLAMMATORY THERAPY
  3. PATANOL [Suspect]
     Indication: ANTIINFLAMMATORY THERAPY

REACTIONS (3)
  - EYE PAIN [None]
  - EYE SWELLING [None]
  - OCULAR HYPERAEMIA [None]
